FAERS Safety Report 24377938 (Version 1)
Quarter: 2024Q3

REPORT INFORMATION
  Report Type: Report from Study
  Country: IN (occurrence: IN)
  Receive Date: 20240930
  Receipt Date: 20240930
  Transmission Date: 20241017
  Serious: Yes (Other)
  Sender: ROCHE
  Company Number: IN-ROCHE-10000089973

PATIENT

DRUGS (1)
  1. RITUXIMAB [Suspect]
     Active Substance: RITUXIMAB
     Indication: Multiple sclerosis
     Route: 042

REACTIONS (11)
  - Herpes zoster [Unknown]
  - Infusion related reaction [Unknown]
  - Blister [Unknown]
  - Eosinophilia [Unknown]
  - Thrombocytopenia [Unknown]
  - Anaemia [Unknown]
  - Pneumocystis jirovecii pneumonia [Unknown]
  - Abdominal infection [Unknown]
  - Sepsis [Unknown]
  - Myocardial infarction [Unknown]
  - COVID-19 [Unknown]
